FAERS Safety Report 9612628 (Version 2)
Quarter: 2013Q4

REPORT INFORMATION
  Report Type: Spontaneous
  Country: US (occurrence: US)
  Receive Date: 20131010
  Receipt Date: 20131010
  Transmission Date: 20140711
  Serious: Yes (Other)
  Sender: FDA-Public Use
  Company Number: US-CELGENEUS-163-21880-13063986

PATIENT
  Sex: Male

DRUGS (5)
  1. REVLIMID [Suspect]
     Indication: PLASMA CELL MYELOMA
     Dosage: 15 MILLIGRAM
     Route: 048
     Dates: start: 201306
  2. DEXAMETHASONE [Concomitant]
     Indication: PRODUCT USED FOR UNKNOWN INDICATION
     Dosage: 20 MILLIGRAM
     Route: 065
  3. ACYCLOVIR [Concomitant]
     Indication: PRODUCT USED FOR UNKNOWN INDICATION
     Route: 065
  4. BACTROBAN DS [Concomitant]
     Indication: PRODUCT USED FOR UNKNOWN INDICATION
     Route: 065
  5. ANTIANXIETY [Concomitant]
     Indication: ANXIETY
     Route: 065

REACTIONS (10)
  - Amyloidosis [Unknown]
  - Haemorrhage [Unknown]
  - Gastrointestinal disorder [Unknown]
  - Thirst [Not Recovered/Not Resolved]
  - Pollakiuria [Not Recovered/Not Resolved]
  - Flatulence [Unknown]
  - Diarrhoea [Unknown]
  - Constipation [Unknown]
  - Pain in extremity [Not Recovered/Not Resolved]
  - Dysgeusia [Not Recovered/Not Resolved]
